FAERS Safety Report 4821738-8 (Version None)
Quarter: 2005Q4

REPORT INFORMATION
  Report Type: 
  Country: None (occurrence: None)
  Receive Date: 20051103
  Receipt Date: 20051018
  Transmission Date: 20060501
  Serious: Yes (Hospitalization)
  Sender: FDA-Public Use
  Company Number: USA0509107995

PATIENT
  Age: 85 Year
  Sex: Male

DRUGS (2)
  1. CYMBALTA [Suspect]
     Indication: DEPRESSION
     Dosage: 30 MG
     Dates: start: 20050804, end: 20050904
  2. NAMENDA [Concomitant]

REACTIONS (2)
  - BLOOD UREA ABNORMAL [None]
  - MYOCLONUS [None]
